FAERS Safety Report 6379251-5 (Version None)
Quarter: 2009Q3

REPORT INFORMATION
  Report Type: 
  Country: None (occurrence: None)
  Receive Date: 20090928
  Receipt Date: 20090918
  Transmission Date: 20100115
  Serious: Yes (Other)
  Sender: FDA-Public Use
  Company Number: B0592433A

PATIENT
  Age: 33 Year
  Sex: Female
  Weight: 66 kg

DRUGS (3)
  1. ALLI [Suspect]
     Dosage: 60MG TWICE PER DAY
     Route: 065
     Dates: start: 20090601, end: 20090701
  2. KEPPRA [Concomitant]
  3. CARBAMAZEPINE [Concomitant]

REACTIONS (2)
  - LIVER FUNCTION TEST ABNORMAL [None]
  - OFF LABEL USE [None]
